FAERS Safety Report 9482362 (Version 1)
Quarter: 2013Q3

REPORT INFORMATION
  Report Type: Spontaneous
  Country: US (occurrence: US)
  Receive Date: 20130828
  Receipt Date: 20130828
  Transmission Date: 20140515
  Serious: No
  Sender: FDA-Public Use
  Company Number: US-B.I. PHARMACEUTICALS,INC./RIDGEFIELD-2013-BI-25503BP

PATIENT
  Age: 62 Year
  Sex: Female

DRUGS (9)
  1. COMBIVENT [Suspect]
     Indication: CHRONIC OBSTRUCTIVE PULMONARY DISEASE
     Dosage: STRENGTH: 20 MCG / 100 MCG; DAILY DOSE: 160 MCG/ 800 MCG
     Route: 055
     Dates: start: 201306
  2. COMBIVENT INHALATION AEROSOL [Concomitant]
     Route: 055
     Dates: end: 201306
  3. ALPRAZOLAM [Concomitant]
     Dosage: 1.5 MG
     Route: 048
  4. VICODIN [Concomitant]
     Route: 048
  5. DILTIAZEM [Concomitant]
     Indication: HYPERTENSION
     Dosage: 40 MG
     Route: 048
  6. ALBUTEROL [Concomitant]
     Route: 055
  7. SINGULAIR [Concomitant]
     Route: 055
  8. CYMBALTA [Concomitant]
     Route: 048
  9. ADVAIR [Concomitant]
     Route: 055

REACTIONS (4)
  - Nervousness [Not Recovered/Not Resolved]
  - Product quality issue [Not Recovered/Not Resolved]
  - Drug ineffective [Not Recovered/Not Resolved]
  - Overdose [Not Recovered/Not Resolved]
